FAERS Safety Report 7790931-7 (Version None)
Quarter: 2011Q3

REPORT INFORMATION
  Report Type: 
  Country: None (occurrence: None)
  Receive Date: 20110930
  Receipt Date: 20110930
  Transmission Date: 20111222
  Serious: Yes (Other)
  Sender: FDA-Public Use
  Company Number: None

PATIENT
  Sex: Male
  Weight: 99.79 kg

DRUGS (1)
  1. ALFUZOSIN HCL [Suspect]
     Indication: PROSTATOMEGALY
     Dosage: 1 TAB
     Route: 048
     Dates: start: 20110919, end: 20110928

REACTIONS (5)
  - BLADDER PAIN [None]
  - GROIN PAIN [None]
  - DRUG INEFFECTIVE [None]
  - NOCTURIA [None]
  - PRODUCT SUBSTITUTION ISSUE [None]
